FAERS Safety Report 19455715 (Version 1)
Quarter: 2021Q2

REPORT INFORMATION
  Report Type: Spontaneous
  Country: US (occurrence: US)
  Receive Date: 20210624
  Receipt Date: 20210624
  Transmission Date: 20210717
  Serious: Yes (Hospitalization)
  Sender: FDA-Public Use
  Company Number: None

PATIENT
  Sex: Female

DRUGS (1)
  1. CAPECITABINE. [Suspect]
     Active Substance: CAPECITABINE
     Indication: ANAL CANCER
     Dosage: ?          OTHER FREQUENCY:BID X14 OF 21 DAYS;?
     Route: 048
     Dates: start: 20210604

REACTIONS (1)
  - Hospitalisation [None]
